FAERS Safety Report 18245654 (Version 1)
Quarter: 2020Q3

REPORT INFORMATION
  Report Type: Report from Study
  Country: None (occurrence: US)
  Receive Date: 20200909
  Receipt Date: 20200909
  Transmission Date: 20201103
  Serious: Yes (Other)
  Sender: FDA-Public Use
  Company Number: US-ABBVIE-20K-163-3361580-00

PATIENT
  Sex: Female

DRUGS (2)
  1. HUMIRA [Suspect]
     Active Substance: ADALIMUMAB
     Indication: RHEUMATOID ARTHRITIS
     Route: 058
  2. HUMIRA [Suspect]
     Active Substance: ADALIMUMAB
     Route: 058

REACTIONS (14)
  - Limb injury [Unknown]
  - Upper limb fracture [Unknown]
  - Mobility decreased [Unknown]
  - Feeling abnormal [Unknown]
  - Therapeutic product effect decreased [Recovering/Resolving]
  - Drug ineffective [Unknown]
  - Memory impairment [Unknown]
  - Rotator cuff syndrome [Unknown]
  - Spinal fusion surgery [Unknown]
  - Back pain [Unknown]
  - Fall [Unknown]
  - Fall [Recovered/Resolved]
  - Arthralgia [Unknown]
  - Impaired healing [Not Recovered/Not Resolved]

NARRATIVE: CASE EVENT DATE: 1997
